FAERS Safety Report 13720461 (Version 1)
Quarter: 2017Q3

REPORT INFORMATION
  Report Type: Spontaneous
  Country: US (occurrence: US)
  Receive Date: 20170706
  Receipt Date: 20170706
  Transmission Date: 20171127
  Serious: Yes (Death)
  Sender: FDA-Public Use
  Company Number: None

PATIENT
  Age: 67 Year
  Sex: Female

DRUGS (2)
  1. SHOWER TO SHOWER TALCUM POWDER [Suspect]
     Active Substance: TALC
     Route: 061
     Dates: start: 1980, end: 2014
  2. JOHNSONS BABY POWDER [Suspect]
     Active Substance: TALC
     Route: 061
     Dates: start: 1980, end: 2014

REACTIONS (1)
  - Injury [None]

NARRATIVE: CASE EVENT DATE: 201503
